FAERS Safety Report 20948408 (Version 1)
Quarter: 2022Q2

REPORT INFORMATION
  Report Type: Report from Study
  Country: CA (occurrence: CA)
  Receive Date: 20220611
  Receipt Date: 20220611
  Transmission Date: 20220721
  Serious: Yes (Death, Hospitalization, Other)
  Sender: FDA-Public Use
  Company Number: None

PATIENT
  Age: 96 Year
  Sex: Female

DRUGS (3)
  1. MONTELUKAST [Suspect]
     Active Substance: MONTELUKAST SODIUM
     Indication: Chronic spontaneous urticaria
     Route: 048
  2. OMALIZUMAB [Suspect]
     Active Substance: OMALIZUMAB
     Indication: Chronic spontaneous urticaria
     Dosage: 1 EVERY 4 WEEKS
     Route: 058
  3. REACTINE [Concomitant]
     Indication: Chronic spontaneous urticaria
     Route: 048

REACTIONS (7)
  - Blood pressure systolic increased [Fatal]
  - Dizziness [Fatal]
  - Fall [Fatal]
  - Initial insomnia [Fatal]
  - Pruritus [Fatal]
  - Urticaria [Fatal]
  - Weight decreased [Fatal]
